FAERS Safety Report 5506344-4 (Version None)
Quarter: 2007Q4

REPORT INFORMATION
  Report Type: 
  Country: None (occurrence: None)
  Receive Date: 20071105
  Receipt Date: 20071023
  Transmission Date: 20080405
  Serious: No
  Sender: FDA-Public Use
  Company Number: DE-AVENTIS-200712652DE

PATIENT
  Age: 35 Year
  Sex: Female

DRUGS (2)
  1. ARAVA [Suspect]
     Dosage: DOSE: NOT REPORTED
     Route: 048
     Dates: start: 20070601
  2. METHOTREXATE SODIUM [Concomitant]
     Dosage: DOSE: NOT REPORTED

REACTIONS (1)
  - DRUG EXPOSURE DURING PREGNANCY [None]
